FAERS Safety Report 12998156 (Version 2)
Quarter: 2017Q1

REPORT INFORMATION
  Report Type: Spontaneous
  Country: US (occurrence: US)
  Receive Date: 20161205
  Receipt Date: 20170105
  Transmission Date: 20170428
  Serious: No
  Sender: FDA-Public Use
  Company Number: US-PFIZER INC-2016557126

PATIENT
  Age: 59 Year
  Sex: Female

DRUGS (10)
  1. ASPIRIN. [Suspect]
     Active Substance: ASPIRIN
  2. ZIAC [Suspect]
     Active Substance: BISOPROLOL FUMARATE\HYDROCHLOROTHIAZIDE
  3. GABAPENTIN. [Suspect]
     Active Substance: GABAPENTIN
  4. BISOPROLOL FUMARATE. [Suspect]
     Active Substance: BISOPROLOL FUMARATE
  5. NEURONTIN [Suspect]
     Active Substance: GABAPENTIN
     Dosage: UNK
  6. HYDROCHLOROTHIAZIDE. [Suspect]
     Active Substance: HYDROCHLOROTHIAZIDE
  7. MORPHINE SULFATE. [Suspect]
     Active Substance: MORPHINE SULFATE
  8. ULTRAM [Suspect]
     Active Substance: TRAMADOL HYDROCHLORIDE
  9. IBUPROFEN. [Suspect]
     Active Substance: IBUPROFEN
  10. CARISOPRODOL. [Suspect]
     Active Substance: CARISOPRODOL

REACTIONS (1)
  - Drug hypersensitivity [Unknown]
